FAERS Safety Report 7350437-6 (Version None)
Quarter: 2011Q1

REPORT INFORMATION
  Report Type: 
  Country: None (occurrence: None)
  Receive Date: 20110314
  Receipt Date: 20110301
  Transmission Date: 20110831
  Serious: Yes (Other)
  Sender: FDA-Public Use
  Company Number: DE-JNJFOC-20110303558

PATIENT
  Age: 89 Year
  Sex: Female

DRUGS (1)
  1. LEVOFLOXACIN [Suspect]
     Indication: PRODUCT USED FOR UNKNOWN INDICATION
     Route: 048

REACTIONS (5)
  - BRADYPHRENIA [None]
  - CARDIOVASCULAR DISORDER [None]
  - CONSTIPATION [None]
  - GENERAL PHYSICAL HEALTH DETERIORATION [None]
  - DIZZINESS [None]
